FAERS Safety Report 4269549-9 (Version None)
Quarter: 2004Q1

REPORT INFORMATION
  Report Type: 
  Country: None (occurrence: None)
  Receive Date: 20040109
  Receipt Date: 20040106
  Transmission Date: 20041129
  Serious: Yes (Life-Threatening)
  Sender: FDA-Public Use
  Company Number: GB-JNJFOC-20040100443

PATIENT
  Age: 58 Year
  Sex: Male
  Weight: 116.3 kg

DRUGS (1)
  1. REMICADE [Suspect]
     Dosage: 330 MG, 1 IN 1 DAY, INTRAVENOUS
     Route: 042
     Dates: start: 20031013, end: 20031013

REACTIONS (6)
  - BLOOD PRESSURE DECREASED [None]
  - BRADYCARDIA [None]
  - CYANOSIS [None]
  - DIZZINESS [None]
  - MYOCARDIAL INFARCTION [None]
  - PARAESTHESIA [None]
